FAERS Safety Report 7079913-0 (Version None)
Quarter: 2010Q4

REPORT INFORMATION
  Report Type: 
  Country: None (occurrence: None)
  Receive Date: 20101102
  Receipt Date: 20101021
  Transmission Date: 20110411
  Serious: Yes (Hospitalization)
  Sender: FDA-Public Use
  Company Number: IT-PFIZER INC-2010012035

PATIENT
  Age: 69 Year
  Sex: Female

DRUGS (2)
  1. ARACYTIN [Suspect]
     Indication: ACUTE MYELOID LEUKAEMIA
     Dosage: 340 MG, X/DAY
     Route: 042
     Dates: start: 20090815, end: 20090819
  2. ZAVEDOS [Suspect]
     Indication: ACUTE MYELOID LEUKAEMIA
     Dosage: 17 MG, X/DAY
     Route: 042
     Dates: start: 20090815, end: 20090816

REACTIONS (2)
  - DIARRHOEA [None]
  - PALATAL OEDEMA [None]
